FAERS Safety Report 24693129 (Version 3)
Quarter: 2025Q2

REPORT INFORMATION
  Report Type: Report from Study
  Country: US (occurrence: US)
  Receive Date: 20241203
  Receipt Date: 20250408
  Transmission Date: 20250716
  Serious: Yes (Other)
  Sender: UCB
  Company Number: US-UCBSA-2024061327

PATIENT
  Age: 27 Year
  Sex: Male
  Weight: 105 kg

DRUGS (2)
  1. FINTEPLA [Suspect]
     Active Substance: FENFLURAMINE
     Indication: Product used for unknown indication
     Dates: start: 20230720
  2. FINTEPLA [Suspect]
     Active Substance: FENFLURAMINE

REACTIONS (4)
  - Pericardial effusion [Not Recovered/Not Resolved]
  - Agitation [Unknown]
  - Hypokinesia [Not Recovered/Not Resolved]
  - Prescribed overdose [Unknown]

NARRATIVE: CASE EVENT DATE: 20230720
